FAERS Safety Report 16898672 (Version 1)
Quarter: 2019Q4

REPORT INFORMATION
  Report Type: Spontaneous
  Country: US (occurrence: US)
  Receive Date: 20191009
  Receipt Date: 20191009
  Transmission Date: 20200122
  Serious: No
  Sender: FDA-Public Use
  Company Number: US-GLAXOSMITHKLINE-US2019AMR178743

PATIENT
  Sex: Male

DRUGS (2)
  1. LAMICTAL XR [Suspect]
     Active Substance: LAMOTRIGINE
     Indication: SEIZURE
     Dosage: 250 MG, UNK
     Route: 065
     Dates: start: 2013
  2. LAMICTAL XR [Suspect]
     Active Substance: LAMOTRIGINE
     Dosage: 250 UNK, UNK
     Route: 065
     Dates: start: 20171213

REACTIONS (4)
  - Product administration error [Unknown]
  - Intentional product misuse [Unknown]
  - Product prescribing error [Unknown]
  - Product dose omission [Unknown]
